FAERS Safety Report 12409409 (Version 2)
Quarter: 2019Q1

REPORT INFORMATION
  Report Type: Spontaneous
  Country: US (occurrence: US)
  Receive Date: 20160526
  Receipt Date: 20190207
  Transmission Date: 20190417
  Serious: No
  Sender: FDA-Public Use
  Company Number: US-JAZZ-2014-US-004150

PATIENT
  Sex: Male
  Weight: 63.49 kg

DRUGS (8)
  1. XYREM [Suspect]
     Active Substance: SODIUM OXYBATE
     Dosage: 4.5 G, BID
     Dates: start: 2013
  2. WELLBUTRIN [Suspect]
     Active Substance: BUPROPION HYDROCHLORIDE
     Indication: PRODUCT USED FOR UNKNOWN INDICATION
     Dosage: UNK
     Dates: start: 20130712
  3. TEGRETOL XR [Suspect]
     Active Substance: CARBAMAZEPINE
     Indication: PRODUCT USED FOR UNKNOWN INDICATION
     Dosage: UNK
     Dates: start: 20150410, end: 20151103
  4. PROZAC [Suspect]
     Active Substance: FLUOXETINE HYDROCHLORIDE
     Indication: PRODUCT USED FOR UNKNOWN INDICATION
     Dosage: UNK
     Dates: start: 20131004
  5. XYREM [Suspect]
     Active Substance: SODIUM OXYBATE
     Dosage: DOSE ADJUSTMENTS
     Route: 048
  6. HURRICAINE [Suspect]
     Active Substance: BENZOCAINE
     Indication: BURNING MOUTH SYNDROME
  7. CAPSAICIN. [Suspect]
     Active Substance: CAPSAICIN
     Indication: BURNING MOUTH SYNDROME
  8. XYREM [Suspect]
     Active Substance: SODIUM OXYBATE
     Indication: NARCOLEPSY
     Dosage: 1.125 G, BID
     Dates: start: 201307, end: 201307

REACTIONS (4)
  - Tooth discolouration [Not Recovered/Not Resolved]
  - Sensitivity of teeth [Unknown]
  - Burning mouth syndrome [Not Recovered/Not Resolved]
  - Enamel anomaly [Not Recovered/Not Resolved]

NARRATIVE: CASE EVENT DATE: 2013
